FAERS Safety Report 7045723-3 (Version None)
Quarter: 2010Q4

REPORT INFORMATION
  Report Type: 
  Country: None (occurrence: None)
  Receive Date: 20101014
  Receipt Date: 20101007
  Transmission Date: 20110411
  Serious: Yes (Disabling, Other)
  Sender: FDA-Public Use
  Company Number: US-MERCK-1010USA00765

PATIENT
  Age: 71 Year
  Sex: Male

DRUGS (6)
  1. DECADRON [Suspect]
     Indication: MULTIPLE MYELOMA
     Dosage: DAYS 1-4
     Route: 065
     Dates: start: 20100518
  2. DECADRON [Suspect]
     Dosage: DAYS 1-4
     Route: 065
     Dates: start: 20100101, end: 20100817
  3. THALOMID [Suspect]
     Indication: MULTIPLE MYELOMA
     Route: 048
     Dates: start: 20100518
  4. THALOMID [Suspect]
     Route: 048
     Dates: start: 20100601, end: 20100823
  5. VELCADE [Suspect]
     Indication: MULTIPLE MYELOMA
     Route: 065
     Dates: start: 20100518
  6. VELCADE [Suspect]
     Route: 065
     Dates: start: 20100101, end: 20100817

REACTIONS (3)
  - FATIGUE [None]
  - NEUROPATHY PERIPHERAL [None]
  - OEDEMA PERIPHERAL [None]
